FAERS Safety Report 22789013 (Version 3)
Quarter: 2023Q4

REPORT INFORMATION
  Report Type: Spontaneous
  Country: JP (occurrence: JP)
  Receive Date: 20230804
  Receipt Date: 20231206
  Transmission Date: 20240110
  Serious: Yes (Other)
  Sender: FDA-Public Use
  Company Number: JP-MSD-2307JPN003935J

PATIENT
  Age: 44 Year
  Sex: Female

DRUGS (3)
  1. KEYTRUDA [Suspect]
     Active Substance: PEMBROLIZUMAB
     Indication: Uterine cancer
     Dosage: 200 MILLIGRAM
     Route: 041
  2. LENVATINIB MESYLATE [Suspect]
     Active Substance: LENVATINIB MESYLATE
     Indication: Uterine cancer
     Dosage: 20 MILLIGRAM
     Route: 048
  3. LENVATINIB MESYLATE [Suspect]
     Active Substance: LENVATINIB MESYLATE
     Dosage: 20 MILLIGRAM
     Route: 048

REACTIONS (8)
  - Tumour pseudoprogression [Unknown]
  - Inflammation [Unknown]
  - Pain in extremity [Recovering/Resolving]
  - Pyrexia [Unknown]
  - Hypertension [Unknown]
  - Rash [Unknown]
  - Platelet count decreased [Unknown]
  - Dysphonia [Unknown]
